FAERS Safety Report 17190660 (Version 1)
Quarter: 2019Q4

REPORT INFORMATION
  Report Type: Spontaneous
  Country: US (occurrence: US)
  Receive Date: 20191223
  Receipt Date: 20191223
  Transmission Date: 20200122
  Serious: Yes (Other)
  Sender: FDA-Public Use
  Company Number: US-SA-2019SA354795

PATIENT
  Age: 49 Year
  Sex: Female

DRUGS (1)
  1. PRALUENT [Suspect]
     Active Substance: ALIROCUMAB
     Dosage: 75 MG, QOW
     Route: 058

REACTIONS (14)
  - Headache [Recovering/Resolving]
  - Sleep disorder [Unknown]
  - Restless legs syndrome [Unknown]
  - Musculoskeletal stiffness [Unknown]
  - White matter lesion [Unknown]
  - Balance disorder [Recovering/Resolving]
  - Dizziness [Unknown]
  - Back pain [Unknown]
  - Neck pain [Recovering/Resolving]
  - Hypoaesthesia [Unknown]
  - Spinal stenosis [Unknown]
  - Multiple sclerosis [Unknown]
  - Paraesthesia [Unknown]
  - Dizziness [Recovering/Resolving]
